FAERS Safety Report 18853298 (Version 1)
Quarter: 2021Q1

REPORT INFORMATION
  Report Type: Spontaneous
  Country: CA (occurrence: CA)
  Receive Date: 20210205
  Receipt Date: 20210205
  Transmission Date: 20210420
  Serious: Yes (Hospitalization)
  Sender: FDA-Public Use
  Company Number: CA-AMGEN-CANSP2021016753

PATIENT
  Age: 53 Year
  Sex: Female

DRUGS (1)
  1. PROLIA [Suspect]
     Active Substance: DENOSUMAB
     Indication: OSTEOPOROSIS POSTMENOPAUSAL
     Dosage: 60 MILLIGRAM PER MILLILITRE
     Route: 065
     Dates: start: 2020

REACTIONS (9)
  - Pyrexia [Unknown]
  - Lip dry [Unknown]
  - Swelling [Unknown]
  - Fatigue [Unknown]
  - Influenza like illness [Unknown]
  - Insomnia [Unknown]
  - Chest discomfort [Unknown]
  - Dysgeusia [Unknown]
  - Myalgia [Unknown]

NARRATIVE: CASE EVENT DATE: 2021
